FAERS Safety Report 9273084 (Version 1)
Quarter: 2013Q2

REPORT INFORMATION
  Report Type: Spontaneous
  Country: JP (occurrence: JP)
  Receive Date: 20130506
  Receipt Date: 20130506
  Transmission Date: 20140414
  Serious: Yes (Hospitalization, Disabling)
  Sender: FDA-Public Use
  Company Number: JP-BAYER-2013-041063

PATIENT
  Age: 65 Year
  Sex: Male
  Weight: 51 kg

DRUGS (10)
  1. BAYASPIRIN [Suspect]
     Indication: PERIPHERAL ARTERIAL OCCLUSIVE DISEASE
     Dosage: DAILY DOSE 100 MG
     Route: 048
     Dates: end: 20130228
  2. PLAVIX [Suspect]
     Dosage: DAILY DOSE 75 MG
     Route: 048
     Dates: end: 20130228
  3. REPAGLINIDE [Concomitant]
     Dosage: DAILY DOSE .75 MG
     Route: 048
     Dates: end: 20130228
  4. GASTER D [Concomitant]
     Dosage: DAILY DOSE 10 MG
     Route: 048
  5. WARFARIN [Concomitant]
     Dosage: DAILY DOSE 1.5 MG
     Route: 048
     Dates: end: 20130228
  6. PLETAAL [Concomitant]
     Dosage: UNK
     Route: 048
  7. TAZOBAC [PIPERACILLIN SODIUM,TAZOBACTAM SODIUM] [Concomitant]
     Indication: ENTERITIS INFECTIOUS
     Dosage: UNK
  8. CEFTRIAXON [Concomitant]
     Dosage: UNK
  9. LEVOFLOXACIN [Concomitant]
     Route: 048
  10. FAROPENEM SODIUM [Concomitant]
     Route: 048

REACTIONS (1)
  - Inflammatory bowel disease [Recovering/Resolving]
